FAERS Safety Report 5848803-0 (Version None)
Quarter: 2008Q3

REPORT INFORMATION
  Report Type: 
  Country: None (occurrence: None)
  Receive Date: 20080818
  Receipt Date: 20080121
  Transmission Date: 20090109
  Serious: No
  Sender: FDA-Public Use
  Company Number: US-BAYER-200811911NA

PATIENT
  Age: 48 Year
  Sex: Female
  Weight: 64 kg

DRUGS (8)
  1. BETASERON [Suspect]
     Indication: RELAPSING-REMITTING MULTIPLE SCLEROSIS
     Dosage: TOTAL DAILY DOSE: 8 MIU
     Route: 058
     Dates: start: 19960101
  2. KEFLEX [Concomitant]
     Dosage: TOTAL DAILY DOSE: 500 MG
  3. TRILIPTOL [Concomitant]
     Dosage: TOTAL DAILY DOSE: 600 MG
  4. KEPPRA [Concomitant]
     Dosage: TOTAL DAILY DOSE: 1200 MG
  5. DITROPAN [Concomitant]
     Dosage: TOTAL DAILY DOSE: 15 MG
  6. IMIPRAMINE [Concomitant]
     Dosage: TOTAL DAILY DOSE: 25 MG
  7. ZOLOFT [Concomitant]
     Dosage: TOTAL DAILY DOSE: 100 MG
  8. DIASTAT [Concomitant]
     Indication: CONVULSION

REACTIONS (3)
  - CONTUSION [None]
  - LOWER EXTREMITY MASS [None]
  - OEDEMA PERIPHERAL [None]
